FAERS Safety Report 6215474-3 (Version None)
Quarter: 2009Q2

REPORT INFORMATION
  Report Type: 
  Country: None (occurrence: None)
  Receive Date: 20090603
  Receipt Date: 20090515
  Transmission Date: 20091009
  Serious: Yes (Other)
  Sender: FDA-Public Use
  Company Number: DAB-2009-00009

PATIENT
  Age: 59 Year
  Sex: Male
  Weight: 85.8 kg

DRUGS (6)
  1. EPIRUBICIN [Suspect]
     Indication: GASTRIC CANCER
     Dosage: 4.7619 MG, 1 IN 3 WEEKS; INTRAVENOUS
     Route: 042
     Dates: start: 20090218
  2. CARBAMAZEPINE [Suspect]
     Indication: MENTAL DISORDER
     Dosage: 600 MG, 2 IN 1 DAYS, ORAL
     Route: 048
  3. CISPLATIN [Suspect]
     Indication: GASTRIC CANCER
     Dosage: 5.7143 MG, 1 IN 3 WEEKS; INTRAVENOUS
     Route: 042
     Dates: start: 20090218
  4. OLANZAPINE [Suspect]
     Indication: MENTAL DISORDER
     Dosage: 10 MG, 1 IN 1 DAYS, ORAL
     Route: 048
  5. PERPHENAZINE [Suspect]
     Indication: MENTAL DISORDER
     Dosage: 8 MG, 2 IN 1 DAYS, ORAL
     Route: 048
  6. XELODA [Suspect]
     Indication: GASTRIC CANCER
     Dosage: 2600 MG, 2 IN 1 DAYS, ORAL
     Route: 048
     Dates: start: 20090218, end: 20090311

REACTIONS (2)
  - DRUG INTERACTION [None]
  - HALLUCINATION, VISUAL [None]
